FAERS Safety Report 5899983-2 (Version None)
Quarter: 2008Q3

REPORT INFORMATION
  Report Type: 
  Country: None (occurrence: None)
  Receive Date: 20080926
  Receipt Date: 20080922
  Transmission Date: 20090109
  Serious: Yes (Life-Threatening, Hospitalization, Other)
  Sender: FDA-Public Use
  Company Number: US-ELI_LILLY_AND_COMPANY-US200809001313

PATIENT
  Sex: Female
  Weight: 54.422 kg

DRUGS (2)
  1. HUMALOG [Suspect]
     Dosage: 5 U, UNK
     Dates: start: 20080829
  2. HUMALOG [Suspect]
     Dosage: 5 U, UNK

REACTIONS (10)
  - BLOOD CHOLESTEROL INCREASED [None]
  - BLOOD GLUCOSE DECREASED [None]
  - DRUG DISPENSING ERROR [None]
  - DYSPNOEA [None]
  - FALL [None]
  - GLAUCOMA [None]
  - HIP FRACTURE [None]
  - HYPERTENSION [None]
  - LOSS OF CONSCIOUSNESS [None]
  - OSTEOPOROSIS [None]
